FAERS Safety Report 15540629 (Version 2)
Quarter: 2018Q4

REPORT INFORMATION
  Report Type: Report from Study
  Country: US (occurrence: US)
  Receive Date: 20181023
  Receipt Date: 20181225
  Transmission Date: 20190205
  Serious: No
  Sender: FDA-Public Use
  Company Number: PHEH2018US043558

PATIENT
  Age: 46 Year
  Sex: Male

DRUGS (2)
  1. COSENTYX [Suspect]
     Active Substance: SECUKINUMAB
     Indication: PSORIASIS
     Dosage: 300 MG, QMO
     Route: 058
     Dates: start: 20181009
  2. VICTOZA [Concomitant]
     Active Substance: LIRAGLUTIDE
     Indication: PRODUCT USED FOR UNKNOWN INDICATION
     Route: 065

REACTIONS (6)
  - Product administration error [Unknown]
  - Drug ineffective [Unknown]
  - Accidental exposure to product [Unknown]
  - Underdose [Unknown]
  - Device malfunction [Unknown]
  - Psoriasis [Unknown]

NARRATIVE: CASE EVENT DATE: 20181009
